FAERS Safety Report 6894047-3 (Version None)
Quarter: 2010Q3

REPORT INFORMATION
  Report Type: 
  Country: None (occurrence: None)
  Receive Date: 20100802
  Receipt Date: 20100721
  Transmission Date: 20110219
  Serious: Yes (Hospitalization, Other)
  Sender: FDA-Public Use
  Company Number: US-JNJFOC-20100401036

PATIENT
  Sex: Male
  Weight: 105.33 kg

DRUGS (1)
  1. LEVAQUIN [Suspect]
     Indication: STAPHYLOCOCCAL INFECTION
     Route: 048

REACTIONS (5)
  - DEPRESSION [None]
  - LIGAMENT RUPTURE [None]
  - MUSCLE RUPTURE [None]
  - RASH PRURITIC [None]
  - ROTATOR CUFF SYNDROME [None]
